FAERS Safety Report 18990511 (Version 2)
Quarter: 2021Q1

REPORT INFORMATION
  Report Type: Report from Study
  Country: CA (occurrence: CA)
  Receive Date: 20210310
  Receipt Date: 20210327
  Transmission Date: 20210420
  Serious: Yes (Hospitalization)
  Sender: FDA-Public Use
  Company Number: NVSC2020CA250668

PATIENT
  Age: 60 Year
  Sex: Female

DRUGS (6)
  1. PIQRAY [Suspect]
     Active Substance: ALPELISIB
     Indication: HER2 POSITIVE BREAST CANCER
     Dosage: 250 MG
     Route: 048
     Dates: start: 20200915
  2. PIQRAY [Suspect]
     Active Substance: ALPELISIB
     Indication: HORMONE REPLACEMENT THERAPY
     Dosage: 250 MG
     Route: 048
     Dates: start: 20200916
  3. PIQRAY [Suspect]
     Active Substance: ALPELISIB
     Indication: HER2 NEGATIVE BREAST CANCER
     Dosage: 250 MG
     Route: 048
     Dates: start: 20200813
  4. PIQRAY [Suspect]
     Active Substance: ALPELISIB
     Indication: BREAST CANCER METASTATIC
     Dosage: 250 MG (STRENGTH: 200 MG + 50 MG)
     Route: 048
     Dates: start: 20210214, end: 20210214
  5. PREDNISONE. [Concomitant]
     Active Substance: PREDNISONE
     Indication: PRODUCT USED FOR UNKNOWN INDICATION
     Route: 065
  6. PIQRAY [Suspect]
     Active Substance: ALPELISIB
     Dosage: UNK
     Route: 048

REACTIONS (11)
  - Rash [Recovered/Resolved]
  - Colitis [Unknown]
  - Weight decreased [Unknown]
  - Rash [Recovered/Resolved]
  - Diarrhoea [Recovering/Resolving]
  - Conjunctivitis [Unknown]
  - Pyrexia [Recovered/Resolved]
  - Fatigue [Unknown]
  - Off label use [Unknown]
  - Urinary tract infection [Unknown]
  - Pain [Unknown]

NARRATIVE: CASE EVENT DATE: 20200823
